FAERS Safety Report 10511817 (Version 1)
Quarter: 2014Q4

REPORT INFORMATION
  Report Type: Spontaneous
  Country: US (occurrence: US)
  Receive Date: 20141010
  Receipt Date: 20141010
  Transmission Date: 20150528
  Serious: Yes (Other)
  Sender: FDA-Public Use
  Company Number: US-ASTRAZENECA-2014SE74430

PATIENT
  Age: 72 Year
  Sex: Male
  Weight: 89.8 kg

DRUGS (6)
  1. KLONOPIN [Concomitant]
     Active Substance: CLONAZEPAM
     Indication: HEADACHE
  2. PLAVIX [Concomitant]
     Active Substance: CLOPIDOGREL BISULFATE
     Indication: ANTICOAGULANT THERAPY
     Dates: start: 20131031
  3. OMEPRAZOLE. [Suspect]
     Active Substance: OMEPRAZOLE
     Indication: DYSPEPSIA
     Route: 048
     Dates: start: 2012, end: 201310
  4. OMEPRAZOLE. [Suspect]
     Active Substance: OMEPRAZOLE
     Indication: GASTROOESOPHAGEAL REFLUX DISEASE
     Route: 048
     Dates: start: 2012, end: 201310
  5. LOSARTAN [Concomitant]
     Active Substance: LOSARTAN
     Indication: BLOOD PRESSURE ABNORMAL
     Dates: start: 2014
  6. CRESTOR [Suspect]
     Active Substance: ROSUVASTATIN CALCIUM
     Route: 048
     Dates: start: 20131031

REACTIONS (7)
  - Dyspepsia [Unknown]
  - Coronary artery occlusion [Unknown]
  - Hiatus hernia [Unknown]
  - Blood calcium increased [Unknown]
  - Abdominal pain upper [Unknown]
  - Gastrointestinal disorder [Unknown]
  - Palpitations [Unknown]

NARRATIVE: CASE EVENT DATE: 2013
